FAERS Safety Report 4886854-3 (Version None)
Quarter: 2006Q1

REPORT INFORMATION
  Report Type: 
  Country: None (occurrence: None)
  Receive Date: 20060119
  Receipt Date: 20060109
  Transmission Date: 20060701
  Serious: Yes (Other)
  Sender: FDA-Public Use
  Company Number: 2006007216

PATIENT
  Age: 57 Year
  Sex: Male

DRUGS (4)
  1. CABERGOLINE [Suspect]
     Indication: PARKINSON'S DISEASE
     Dosage: 1 TABLET (DAILY), ORAL
     Route: 048
     Dates: start: 20020101
  2. MADOPAR (BENSERAZIDE HYDROCHLORIDE, LEVODOPA) [Concomitant]
  3. PARKINSAN (BUDIPINE) [Concomitant]
  4. UROXATRAL [Concomitant]

REACTIONS (3)
  - AORTIC VALVE INCOMPETENCE [None]
  - ARTERIOSCLEROSIS [None]
  - MITRAL VALVE INCOMPETENCE [None]
